FAERS Safety Report 5491223-1 (Version None)
Quarter: 2007Q4

REPORT INFORMATION
  Report Type: 
  Country: None (occurrence: None)
  Receive Date: 20071017
  Receipt Date: 20071009
  Transmission Date: 20080405
  Serious: Yes (Other)
  Sender: FDA-Public Use
  Company Number: S07-USA-05417-01

PATIENT
  Age: 42 Year
  Sex: Female

DRUGS (2)
  1. LEXAPRO [Suspect]
     Indication: ANXIETY
     Dates: start: 20070201, end: 20070401
  2. LEXAPRO [Suspect]
     Indication: DEPRESSION
     Dates: start: 20070201, end: 20070401

REACTIONS (6)
  - DYSARTHRIA [None]
  - IMPAIRED DRIVING ABILITY [None]
  - LETHARGY [None]
  - LOSS OF EMPLOYMENT [None]
  - MOTOR DYSFUNCTION [None]
  - SOMNOLENCE [None]
